FAERS Safety Report 12491514 (Version 1)
Quarter: 2016Q2

REPORT INFORMATION
  Report Type: Spontaneous
  Country: US (occurrence: None)
  Receive Date: 20160622
  Receipt Date: 20160622
  Transmission Date: 20160815
  Serious: No
  Sender: FDA-Public Use
  Company Number: None

PATIENT
  Age: 67 Year
  Sex: Female
  Weight: 47.63 kg

DRUGS (6)
  1. MULTIPLE VITAMIN [Concomitant]
     Active Substance: VITAMINS
  2. SEPTOCAINE [Suspect]
     Active Substance: ARTICAINE HYDROCHLORIDE\EPINEPHRINE BITARTRATE
     Indication: PRODUCT USED FOR UNKNOWN INDICATION
     Dosage: DENTAL ANESTHETIC?
  3. GARLIC. [Concomitant]
     Active Substance: GARLIC
  4. ZANTAC [Concomitant]
     Active Substance: RANITIDINE HYDROCHLORIDE
  5. VALSARTAN. [Concomitant]
     Active Substance: VALSARTAN
  6. CALCIUJM CITRATE [Concomitant]

REACTIONS (15)
  - Lymphatic disorder [None]
  - Headache [None]
  - Pain [None]
  - Abdominal discomfort [None]
  - Iatrogenic injury [None]
  - Lymphadenopathy [None]
  - Lymphoedema [None]
  - Feeling hot [None]
  - Muscle tightness [None]
  - Intervertebral disc disorder [None]
  - Pancreatic disorder [None]
  - Skin fissures [None]
  - Cough [None]
  - Dry skin [None]
  - Infection [None]

NARRATIVE: CASE EVENT DATE: 20130213
